FAERS Safety Report 6929546-9 (Version None)
Quarter: 2010Q3

REPORT INFORMATION
  Report Type: 
  Country: None (occurrence: None)
  Receive Date: 20100813
  Receipt Date: 20100810
  Transmission Date: 20110219
  Serious: Yes (Death, Life-Threatening, Hospitalization)
  Sender: FDA-Public Use
  Company Number: 2010SP043517

PATIENT
  Age: 73 Year
  Sex: Male
  Weight: 60 kg

DRUGS (9)
  1. TEMODAL [Suspect]
     Indication: ANAPLASTIC ASTROCYTOMA
     Dosage: 100 MG; QD; PO
     Route: 048
     Dates: start: 20080401, end: 20080512
  2. NAUZELIN [Concomitant]
  3. EXCEGRAN [Concomitant]
  4. HERBESSER [Concomitant]
  5. EPADEL [Concomitant]
  6. GLUCOBAY [Concomitant]
  7. MOBIC [Concomitant]
  8. GASTER [Concomitant]
  9. BETAMETHASONE SODIUM PHOSPHATE [Concomitant]

REACTIONS (3)
  - CEREBRAL INFARCTION [None]
  - PLATELET COUNT DECREASED [None]
  - PNEUMOCYSTIS JIROVECI PNEUMONIA [None]
